FAERS Safety Report 19167776 (Version 1)
Quarter: 2021Q2

REPORT INFORMATION
  Report Type: Spontaneous
  Country: US (occurrence: US)
  Receive Date: 20210420
  Receipt Date: 20210420
  Transmission Date: 20210717
  Serious: No
  Sender: FDA-Public Use
  Company Number: None

PATIENT
  Age: 60 Year
  Sex: Female

DRUGS (2)
  1. VITAMIN D [Concomitant]
     Active Substance: VITAMIN D NOS
  2. BIOTE NOT SPECIFIED [Suspect]
     Active Substance: ESTROGENS\TESTOSTERONE
     Indication: MENOPAUSE

REACTIONS (4)
  - Uterine cancer [None]
  - Vaginal haemorrhage [None]
  - Endometrial thickening [None]
  - Pain [None]

NARRATIVE: CASE EVENT DATE: 20201220
